FAERS Safety Report 6831102-8 (Version None)
Quarter: 2010Q3

REPORT INFORMATION
  Report Type: 
  Country: None (occurrence: None)
  Receive Date: 20100712
  Receipt Date: 20100608
  Transmission Date: 20110219
  Serious: No
  Sender: FDA-Public Use
  Company Number: US-BAYER-201017099BCC

PATIENT
  Age: 48 Year
  Sex: Male

DRUGS (1)
  1. FINACEA [Suspect]
     Indication: RASH
     Dosage: APPLIED ONCE IN THE MORNING FOR 4-5 DAYS / BOTTLE COUNT UNKNOWN
     Route: 061
     Dates: start: 20100527, end: 20100601

REACTIONS (1)
  - PRURITUS [None]
